FAERS Safety Report 8368407-8 (Version None)
Quarter: 2012Q2

REPORT INFORMATION
  Report Type: 
  Country: None (occurrence: None)
  Receive Date: 20120517
  Receipt Date: 20120508
  Transmission Date: 20120825
  Serious: Yes (Hospitalization)
  Sender: FDA-Public Use
  Company Number: ES-ELI_LILLY_AND_COMPANY-ES201205002913

PATIENT
  Sex: Female
  Weight: 92 kg

DRUGS (10)
  1. FORTEO [Suspect]
     Indication: OSTEOPOROSIS
     Dosage: 20 UG, QD
     Route: 058
     Dates: start: 20110801, end: 20120310
  2. METFORMIN HCL [Concomitant]
     Indication: DIABETES MELLITUS
     Dosage: 1700 MG, QD
     Route: 048
  3. DAFLON [Concomitant]
     Indication: CARDIOVASCULAR DISORDER
     Dosage: 500 MG, QD
     Route: 048
  4. IDAPTAN [Concomitant]
     Indication: CARDIOVASCULAR DISORDER
     Dosage: 60 MG, QD
     Route: 048
  5. ACETILCISTEINA [Concomitant]
     Indication: EMPHYSEMA
     Dosage: 3 DF, QD
     Route: 048
  6. ATORVASTATIN CALCIUM [Concomitant]
     Indication: BLOOD CHOLESTEROL ABNORMAL
     Dosage: 40 MG, QD
     Route: 048
  7. ALDACTONE [Concomitant]
     Indication: THYROID DISORDER
     Dosage: 25 MG, QD
     Route: 048
  8. FUROSEMIDE [Concomitant]
     Indication: POLYURIA
     Dosage: 2 DF, QD
     Route: 048
  9. LEVOTHYROXINE SODIUM [Concomitant]
     Indication: THYROID DISORDER
     Dosage: 75 MG, QD
     Route: 048
  10. ASPIRIN [Concomitant]
     Indication: CARDIOVASCULAR DISORDER
     Dosage: 1 DF, QD
     Route: 048

REACTIONS (3)
  - WRIST FRACTURE [None]
  - UPPER LIMB FRACTURE [None]
  - FALL [None]
